FAERS Safety Report 23356620 (Version 1)
Quarter: 2024Q1

REPORT INFORMATION
  Report Type: Spontaneous
  Country: DE (occurrence: DE)
  Receive Date: 20240102
  Receipt Date: 20240102
  Transmission Date: 20240409
  Serious: Yes (Hospitalization, Other)
  Sender: FDA-Public Use
  Company Number: DE-CPL-003872

PATIENT
  Age: 56 Year
  Sex: Male

DRUGS (1)
  1. SILDENAFIL [Suspect]
     Active Substance: SILDENAFIL
     Indication: Product used for unknown indication
     Dosage: STRENGTH: 100 MG

REACTIONS (12)
  - Accidental poisoning [Unknown]
  - Methaemoglobinaemia [Recovered/Resolved]
  - Product contamination [Unknown]
  - Vertigo [Recovered/Resolved]
  - Head injury [Recovered/Resolved]
  - Syncope [Recovered/Resolved]
  - Face injury [Recovered/Resolved]
  - Headache [Recovered/Resolved]
  - Lip injury [Recovered/Resolved]
  - Circulatory collapse [Recovered/Resolved]
  - Fall [Unknown]
  - Orthostatic intolerance [Recovered/Resolved]
